FAERS Safety Report 7693157-0 (Version None)
Quarter: 2011Q3

REPORT INFORMATION
  Report Type: 
  Country: None (occurrence: None)
  Receive Date: 20110816
  Receipt Date: 20110801
  Transmission Date: 20111222
  Serious: Yes (Other)
  Sender: FDA-Public Use
  Company Number: KR-ACCORD-010272

PATIENT
  Age: 60 Year
  Sex: Male

DRUGS (2)
  1. GEMCITABINE [Suspect]
     Indication: PANCREATIC CARCINOMA STAGE III
  2. CISPLATIN [Suspect]
     Indication: PANCREATIC CARCINOMA STAGE III

REACTIONS (4)
  - REFUSAL OF TREATMENT BY PATIENT [None]
  - SKIN BURNING SENSATION [None]
  - OFF LABEL USE [None]
  - ABDOMINAL PAIN [None]
